FAERS Safety Report 7601113-3 (Version None)
Quarter: 2011Q2

REPORT INFORMATION
  Report Type: 
  Country: None (occurrence: None)
  Receive Date: 20110629
  Receipt Date: 20100610
  Transmission Date: 20111010
  Serious: Yes (Hospitalization)
  Sender: FDA-Public Use
  Company Number: 10-ADE-SE-0027-ACT

PATIENT
  Age: 45 Year
  Sex: Female
  Weight: 58.9676 kg

DRUGS (9)
  1. HYOSCYAMINE [Concomitant]
  2. H P ACTHAR [Suspect]
     Indication: MULTIPLE SCLEROSIS
     Dosage: 80 IU SC DAILY X 5 DAYS
     Route: 058
     Dates: start: 20100603, end: 20100607
  3. PROVIGIL [Concomitant]
  4. SYNTHROID [Concomitant]
  5. SIMVASTATIN [Concomitant]
  6. PRISTIQ [Concomitant]
  7. XANAX [Concomitant]
  8. LASIX [Concomitant]
  9. PROTONIX [Concomitant]

REACTIONS (3)
  - OEDEMA PERIPHERAL [None]
  - HYPOKALAEMIA [None]
  - MULTIPLE SCLEROSIS RELAPSE [None]
